FAERS Safety Report 19895964 (Version 1)
Quarter: 2021Q3

REPORT INFORMATION
  Report Type: Spontaneous
  Country: TR (occurrence: TR)
  Receive Date: 20210929
  Receipt Date: 20210929
  Transmission Date: 20211014
  Serious: Yes (Other)
  Sender: FDA-Public Use
  Company Number: TR-TEVA-2021-TR-1958162

PATIENT
  Age: 75 Year
  Sex: Male

DRUGS (16)
  1. DOXORUBICIN [Suspect]
     Active Substance: DOXORUBICIN
     Indication: PLASMA CELL MYELOMA
     Dosage: TWO CYCLES OF VAD REGIMEN
     Route: 065
     Dates: start: 200709, end: 200711
  2. VINCRISTINE [Suspect]
     Active Substance: VINCRISTINE
     Indication: PLASMA CELL MYELOMA
     Dosage: TWO CYCLES OF VAD REGIMEN
     Route: 065
     Dates: start: 200709, end: 200711
  3. CYCLOPHOSPHAMIDE. [Suspect]
     Active Substance: CYCLOPHOSPHAMIDE
     Dosage: POM?CYCLO?DEX REGIMEN FOR 40 CYCLES
     Route: 065
     Dates: start: 201602
  4. MELPHALAN. [Suspect]
     Active Substance: MELPHALAN
     Dosage: HIGH?DOSE MELPHALAN
     Route: 065
     Dates: start: 201204, end: 201204
  5. LENALIDOMIDE [Suspect]
     Active Substance: LENALIDOMIDE
     Indication: PLASMA CELL MYELOMA
     Dosage: 24 CYCLES OF LEN?DEX REGIMEN
     Route: 065
     Dates: start: 201306, end: 201601
  6. POMALIDOMIDE [Suspect]
     Active Substance: POMALIDOMIDE
     Indication: PLASMA CELL MYELOMA
     Dosage: POM?CYCLO?DEX REGIMEN SCHEDULED FOR 40 CYCLES
     Route: 065
     Dates: start: 201602
  7. DEXAMETHASONE. [Suspect]
     Active Substance: DEXAMETHASONE
     Dosage: POM?CYCLO?DEX REGIMEN SCHEDULED FOR 40 CYCLES
     Route: 065
     Dates: start: 201602
  8. DEXAMETHASONE. [Suspect]
     Active Substance: DEXAMETHASONE
     Dosage: SIX CYCLES OF CYBORD REGIMEN
     Route: 065
     Dates: start: 200712, end: 200809
  9. BORTEZOMIB. [Suspect]
     Active Substance: BORTEZOMIB
     Dosage: EIGHT CYCLES OF CYBORD REGIMEN
     Route: 065
     Dates: start: 201102, end: 201110
  10. CYCLOPHOSPHAMIDE. [Suspect]
     Active Substance: CYCLOPHOSPHAMIDE
     Indication: PLASMA CELL MYELOMA
     Dosage: SIX CYCLES OF CYBORD REGIMEN
     Route: 065
     Dates: start: 200712, end: 200809
  11. CYCLOPHOSPHAMIDE. [Suspect]
     Active Substance: CYCLOPHOSPHAMIDE
     Dosage: EIGHT CYCLES OF CYBORD REGIMEN
     Route: 065
     Dates: start: 201102, end: 201110
  12. MELPHALAN. [Suspect]
     Active Substance: MELPHALAN
     Indication: IMMUNOSUPPRESSANT DRUG THERAPY
     Dosage: HIGH?DOSE MELPHALAN
     Route: 065
     Dates: start: 200901, end: 200901
  13. DEXAMETHASONE. [Suspect]
     Active Substance: DEXAMETHASONE
     Indication: PLASMA CELL MYELOMA
     Dosage: TWO CYCLES OF VAD REGIMEN
     Route: 065
     Dates: start: 200709, end: 200711
  14. DEXAMETHASONE. [Suspect]
     Active Substance: DEXAMETHASONE
     Dosage: EIGHT CYCLES OF CYBORD REGIMEN
     Route: 065
     Dates: start: 201102, end: 201110
  15. DEXAMETHASONE. [Suspect]
     Active Substance: DEXAMETHASONE
     Dosage: 24 CYCLES OF LEN?DEX REGIMEN
     Route: 065
     Dates: start: 201306, end: 201601
  16. BORTEZOMIB. [Suspect]
     Active Substance: BORTEZOMIB
     Indication: PLASMA CELL MYELOMA
     Dosage: SIX CYCLES OF CYBORD REGIMEN
     Route: 065
     Dates: start: 200712, end: 200809

REACTIONS (6)
  - Weight decreased [Recovering/Resolving]
  - Isosporiasis [Recovering/Resolving]
  - Gastritis [Recovering/Resolving]
  - Diarrhoea [Recovering/Resolving]
  - Duodenitis [Recovering/Resolving]
  - Colitis [Recovering/Resolving]

NARRATIVE: CASE EVENT DATE: 2016
